FAERS Safety Report 17847943 (Version 1)
Quarter: 2020Q2

REPORT INFORMATION
  Report Type: Spontaneous
  Country: CN (occurrence: CN)
  Receive Date: 20200601
  Receipt Date: 20200601
  Transmission Date: 20200714
  Serious: Yes (Other)
  Sender: FDA-Public Use
  Company Number: CN-ROCHE-2608379

PATIENT
  Age: 34 Year
  Sex: Male
  Weight: 60 kg

DRUGS (24)
  1. TAMIFLU [Suspect]
     Active Substance: OSELTAMIVIR PHOSPHATE
     Indication: INFLUENZA
     Route: 065
  2. VALCYTE [Suspect]
     Active Substance: VALGANCICLOVIR HYDROCHLORIDE
     Route: 048
     Dates: start: 20190226, end: 20190321
  3. METHYLPREDNISOLONE SODIUM SUCCINATE. [Concomitant]
     Active Substance: METHYLPREDNISOLONE SODIUM SUCCINATE
     Route: 065
     Dates: start: 20190325, end: 20190326
  4. SULFAMETHOXAZOLE [Concomitant]
     Active Substance: SULFAMETHOXAZOLE
     Route: 065
     Dates: start: 20190219, end: 20190225
  5. SULFAMETHOXAZOLE [Concomitant]
     Active Substance: SULFAMETHOXAZOLE
     Route: 065
     Dates: start: 20190314
  6. SULFAMETHOXAZOLE [Concomitant]
     Active Substance: SULFAMETHOXAZOLE
     Route: 065
     Dates: start: 20190321, end: 20190321
  7. METHYLPREDNISOLONE SODIUM SUCCINATE. [Concomitant]
     Active Substance: METHYLPREDNISOLONE SODIUM SUCCINATE
     Indication: PNEUMONIA
     Dosage: ONCE PER DAY,TWICE PER DAY, THREE TIMES PER DAY
     Route: 065
     Dates: start: 20190212, end: 20190225
  8. METHYLPREDNISOLONE SODIUM SUCCINATE. [Concomitant]
     Active Substance: METHYLPREDNISOLONE SODIUM SUCCINATE
     Route: 065
     Dates: start: 20190322
  9. METHYLPREDNISOLONE SODIUM SUCCINATE. [Concomitant]
     Active Substance: METHYLPREDNISOLONE SODIUM SUCCINATE
     Route: 065
     Dates: start: 20190323, end: 20190324
  10. SULFAMETHOXAZOLE [Concomitant]
     Active Substance: SULFAMETHOXAZOLE
     Indication: PNEUMONIA
     Route: 065
     Dates: start: 20190213, end: 20190218
  11. SULFAMETHOXAZOLE [Concomitant]
     Active Substance: SULFAMETHOXAZOLE
     Route: 065
     Dates: start: 20190302, end: 20190313
  12. CASPOFUNGIN ACETATE. [Concomitant]
     Active Substance: CASPOFUNGIN ACETATE
     Indication: PNEUMONIA
     Dosage: ONCE PER DAY,TWICE PER DAY, THREE TIMES PER DAY
     Route: 065
     Dates: start: 20190212, end: 20190227
  13. CELLCEPT [Suspect]
     Active Substance: MYCOPHENOLATE MOFETIL\MYCOPHENOLATE MOFETIL HYDROCHLORIDE
     Indication: PRODUCT USED FOR UNKNOWN INDICATION
     Route: 065
     Dates: start: 201903
  14. CASPOFUNGIN ACETATE. [Concomitant]
     Active Substance: CASPOFUNGIN ACETATE
     Route: 065
     Dates: start: 20190228, end: 20190321
  15. SULFAMETHOXAZOLE [Concomitant]
     Active Substance: SULFAMETHOXAZOLE
     Route: 065
     Dates: start: 20190317, end: 20190320
  16. LEVOFLOXACIN. [Concomitant]
     Active Substance: LEVOFLOXACIN
     Indication: PNEUMONIA
     Route: 065
     Dates: start: 20190313, end: 20190318
  17. VALCYTE [Suspect]
     Active Substance: VALGANCICLOVIR HYDROCHLORIDE
     Indication: PNEUMONIA
     Route: 048
     Dates: end: 20190225
  18. METHYLPREDNISOLONE SODIUM SUCCINATE. [Concomitant]
     Active Substance: METHYLPREDNISOLONE SODIUM SUCCINATE
     Dosage: TWICE PER DAY, ONCE PER DAY,
     Route: 065
     Dates: start: 20190226, end: 20190321
  19. TACROLIMUS. [Concomitant]
     Active Substance: TACROLIMUS
     Route: 065
     Dates: start: 201903
  20. METHYLPREDNISOLONE SODIUM SUCCINATE. [Concomitant]
     Active Substance: METHYLPREDNISOLONE SODIUM SUCCINATE
     Route: 065
     Dates: start: 20190327, end: 20190329
  21. PIPERACILLIN SODIUM [Concomitant]
     Active Substance: PIPERACILLIN SODIUM
     Route: 065
     Dates: start: 20190319, end: 20190321
  22. TAZOBACTAM SODIUM [Concomitant]
     Active Substance: TAZOBACTAM SODIUM
     Route: 065
     Dates: start: 20190319, end: 20190321
  23. SULFAMETHOXAZOLE [Concomitant]
     Active Substance: SULFAMETHOXAZOLE
     Route: 065
     Dates: start: 20190226, end: 20190301
  24. IMMUNOGLOBULINS [Concomitant]
     Indication: PNEUMONIA
     Route: 065
     Dates: start: 20190213, end: 20190225

REACTIONS (5)
  - Off label use [Unknown]
  - Pneumonia [Unknown]
  - Transplant rejection [Unknown]
  - Intentional product use issue [Unknown]
  - Influenza [Unknown]
